FAERS Safety Report 8956777 (Version 1)
Quarter: 2012Q4

REPORT INFORMATION
  Report Type: 
  Country: US (occurrence: US)
  Receive Date: 20121210
  Receipt Date: 20121210
  Transmission Date: 20130627
  Serious: Yes (Other)
  Sender: FDA-Public Use
  Company Number: CHPA2012US024546

PATIENT
  Age: 79 Year
  Sex: Male

DRUGS (1)
  1. BUCKLEY^S COUGH MIXTURE [Suspect]
     Indication: THROAT IRRITATION
     Dosage: 1 tsp as needed
     Route: 048
     Dates: start: 201006

REACTIONS (5)
  - Bronchitis [Recovered/Resolved]
  - Off label use [Unknown]
  - Therapeutic response unexpected [Unknown]
  - Expired drug administered [Unknown]
  - Wrong technique in drug usage process [Unknown]
